FAERS Safety Report 19890510 (Version 1)
Quarter: 2021Q3

REPORT INFORMATION
  Report Type: Spontaneous
  Country: US (occurrence: US)
  Receive Date: 20210928
  Receipt Date: 20210928
  Transmission Date: 20211014
  Serious: No
  Sender: FDA-Public Use
  Company Number: US-PFIZER INC-2021236463

PATIENT
  Age: 65 Year
  Sex: Female
  Weight: 71.66 kg

DRUGS (7)
  1. LYRICA [Suspect]
     Active Substance: PREGABALIN
     Indication: EPILEPSY
     Dosage: 25 MG, EVERY 4 HRS (6 TIMES A DAY)
     Route: 048
  2. LYRICA [Suspect]
     Active Substance: PREGABALIN
     Indication: DEPRESSION
  3. PREMARIN [Concomitant]
     Active Substance: ESTROGENS, CONJUGATED
     Dosage: UNK
  4. LYRICA [Suspect]
     Active Substance: PREGABALIN
     Indication: FOCAL DYSCOGNITIVE SEIZURES
  5. CYMBALTA [Concomitant]
     Active Substance: DULOXETINE HYDROCHLORIDE
     Dosage: UNK
  6. LYRICA [Suspect]
     Active Substance: PREGABALIN
     Indication: NEUROPATHY PERIPHERAL
     Dosage: 25 MG, AS NEEDED (TAKE ONE CAPSULE BY MOUTH)
     Route: 048
  7. LYRICA [Suspect]
     Active Substance: PREGABALIN
     Indication: SEIZURE
     Dosage: 150 MG, DAILY (1 CAPSULE AT 8 AM, 2 PM, AND 6 PM, THEN 3 CAPSULES AT 10 PM)

REACTIONS (2)
  - Off label use [Unknown]
  - Therapeutic response unexpected [Unknown]
